FAERS Safety Report 4414984-9 (Version None)
Quarter: 2004Q3

REPORT INFORMATION
  Report Type: 
  Country: None (occurrence: None)
  Receive Date: 20040721
  Receipt Date: 20040706
  Transmission Date: 20050211
  Serious: Yes (Death)
  Sender: FDA-Public Use
  Company Number: 601270

PATIENT
  Age: 61 Year
  Sex: Male
  Weight: 62.3 kg

DRUGS (10)
  1. GAMMAGARD S/D [Suspect]
     Indication: PEMPHIGUS
     Dosage: 30 GM;INTRAVENOUS
     Route: 042
     Dates: start: 20031212, end: 20040109
  2. GAMMAGARD S/D [Suspect]
  3. GAMMAGARD S/D [Suspect]
  4. GAMMAGARD S/D [Suspect]
  5. GAMIMUNE [Suspect]
     Indication: PEMPHIGUS
     Dosage: 55 GM;ONCE
     Dates: start: 20030919, end: 20030919
  6. PREDNISONE [Concomitant]
  7. DIDROCAL [Concomitant]
  8. RANITIDINE [Concomitant]
  9. TIMOLOL MALEATE [Concomitant]
  10. MINOCYCLINE HCL [Concomitant]

REACTIONS (9)
  - ANGINA UNSTABLE [None]
  - CEREBROVASCULAR ACCIDENT [None]
  - COMPLETED SUICIDE [None]
  - ELECTROCARDIOGRAM POOR R-WAVE PROGRESSION [None]
  - GUN SHOT WOUND [None]
  - HEMIPLEGIA [None]
  - LACUNAR INFARCTION [None]
  - LOBAR PNEUMONIA [None]
  - SINUS TACHYCARDIA [None]
